FAERS Safety Report 8287513-X (Version None)
Quarter: 2012Q2

REPORT INFORMATION
  Report Type: 
  Country: None (occurrence: None)
  Receive Date: 20120416
  Receipt Date: 20120405
  Transmission Date: 20120825
  Serious: Yes (Hospitalization)
  Sender: FDA-Public Use
  Company Number: JP-ELI_LILLY_AND_COMPANY-JP201201002733

PATIENT
  Sex: Female
  Weight: 74 kg

DRUGS (1)
  1. GEMZAR [Suspect]
     Indication: OVARIAN EPITHELIAL CANCER
     Dosage: 1500 MG, OTHER
     Route: 042
     Dates: start: 20110907, end: 20111221

REACTIONS (2)
  - RADIATION INTERACTION [None]
  - LUNG DISORDER [None]
